FAERS Safety Report 15130568 (Version 1)
Quarter: 2018Q3

REPORT INFORMATION
  Report Type: Spontaneous
  Country: FR (occurrence: FR)
  Receive Date: 20180711
  Receipt Date: 20180711
  Transmission Date: 20181010
  Serious: Yes (Hospitalization)
  Sender: FDA-Public Use
  Company Number: FR-PFIZER INC-2018273644

PATIENT
  Age: 55 Year
  Sex: Female
  Weight: 75 kg

DRUGS (5)
  1. ZOPICLONE [Suspect]
     Active Substance: ZOPICLONE
     Dosage: 127 MG, UNK
     Route: 048
     Dates: start: 20180511, end: 20180511
  2. ROSUVASTATINE /01588601/ [Suspect]
     Active Substance: ROSUVASTATIN
     Dosage: UNK
     Route: 048
     Dates: start: 20180511, end: 20180511
  3. BISOPROLOL /00802602/ [Suspect]
     Active Substance: BISOPROLOL
     Dosage: 100 MG, UNK
     Route: 048
     Dates: start: 20180511, end: 20180511
  4. VENLAFAXINE HCL [Suspect]
     Active Substance: VENLAFAXINE HYDROCHLORIDE
     Dosage: UNK
     Route: 048
     Dates: start: 20180511, end: 20180511
  5. BROMAZEPAM [Suspect]
     Active Substance: BROMAZEPAM
     Dosage: UNK
     Route: 048
     Dates: start: 20180511, end: 20180511

REACTIONS (3)
  - Suicide attempt [Recovered/Resolved]
  - Bradycardia [Recovered/Resolved]
  - Hypotension [Recovered/Resolved]

NARRATIVE: CASE EVENT DATE: 20180511
